FAERS Safety Report 10815265 (Version 2)
Quarter: 2017Q3

REPORT INFORMATION
  Report Type: Spontaneous
  Country: US (occurrence: US)
  Receive Date: 20150218
  Receipt Date: 20170921
  Transmission Date: 20171127
  Serious: Yes (Other)
  Sender: FDA-Public Use
  Company Number: US-009507513-1502USA007591

PATIENT
  Age: 31 Year
  Sex: Female

DRUGS (1)
  1. NEXPLANON [Suspect]
     Active Substance: ETONOGESTREL
     Dosage: 1 SINGLE ROD, UNK
     Route: 059
     Dates: start: 2012, end: 20170906

REACTIONS (4)
  - Unintended pregnancy [Unknown]
  - Pregnancy with implant contraceptive [Unknown]
  - Complication of device removal [Recovered/Resolved]
  - Device breakage [Recovered/Resolved]

NARRATIVE: CASE EVENT DATE: 20170906
